FAERS Safety Report 7584949-7 (Version None)
Quarter: 2011Q2

REPORT INFORMATION
  Report Type: 
  Country: None (occurrence: None)
  Receive Date: 20110630
  Receipt Date: 20110201
  Transmission Date: 20111010
  Serious: Yes (Death)
  Sender: FDA-Public Use
  Company Number: US-MILLENNIUM PHARMACEUTICALS, INC.-2011-02669

PATIENT
  Sex: Male

DRUGS (1)
  1. VELCADE [Suspect]
     Indication: AMYLOIDOSIS

REACTIONS (1)
  - DEATH [None]
